FAERS Safety Report 22587849 (Version 6)
Quarter: 2024Q1

REPORT INFORMATION
  Report Type: Spontaneous
  Country: US (occurrence: US)
  Receive Date: 20230612
  Receipt Date: 20240220
  Transmission Date: 20240410
  Serious: No
  Sender: FDA-Public Use
  Company Number: US-PFIZER INC-PV202300003091

PATIENT
  Age: 68 Year
  Sex: Male

DRUGS (4)
  1. BOSULIF [Suspect]
     Active Substance: BOSUTINIB MONOHYDRATE
     Indication: Leukaemia
     Dosage: 1 DF (100 MG), 1X/DAY, (MAINTENANCE DOSE FROM 1 PILL A DAY TO 3)
  2. BOSULIF [Suspect]
     Active Substance: BOSUTINIB MONOHYDRATE
     Dosage: TAKE 2 TABLETS (200 MG) BY MOUTH ONCE DAILY WITH A MEAL.
     Route: 048
  3. BOSULIF [Suspect]
     Active Substance: BOSUTINIB MONOHYDRATE
     Dosage: 300 MG, 1X/DAY, [TAKE 3 TABLETS (300 MG) BY MOUTH ONCE DAILY WITH A MEAL]
     Route: 048
  4. BOSULIF [Suspect]
     Active Substance: BOSUTINIB MONOHYDRATE
     Dosage: TAKE 2 TABLETS (200 MG) BY MOUTH ONCE DAILY WITH A MEAL.
     Route: 048

REACTIONS (1)
  - White blood cell count increased [Unknown]
